FAERS Safety Report 5259776-6 (Version None)
Quarter: 2007Q1

REPORT INFORMATION
  Report Type: 
  Country: None (occurrence: None)
  Receive Date: 20070309
  Receipt Date: 20070226
  Transmission Date: 20070707
  Serious: Yes (Other)
  Sender: FDA-Public Use
  Company Number: GB-SOLVAY-00207000598

PATIENT
  Age: 35 Year
  Sex: Female

DRUGS (6)
  1. PROGESTERONE [Suspect]
     Indication: IN VITRO FERTILISATION
     Dosage: DAILY DOSE: 800 MILLIGRAM(S)
     Route: 067
     Dates: start: 20000601, end: 20000601
  2. DIPRIVAN [Suspect]
     Indication: IN VITRO FERTILISATION
     Dosage: DAILY DOSE: 240 MILLIGRAM(S)
     Route: 042
     Dates: start: 20000601, end: 20000601
  3. PREGNYL [Suspect]
     Indication: IN VITRO FERTILISATION
     Dosage: DAILY DOSE: 1000 INTERNATIONAL UNIT(S)
     Route: 065
     Dates: start: 20000601, end: 20000601
  4. PROSTAP [Suspect]
     Indication: IN VITRO FERTILISATION
     Dosage: DAILY DOSE: 3.75 MILLIGRAM(S)
     Route: 065
     Dates: start: 20000601
  5. PURGEON [Suspect]
     Indication: IN VITRO FERTILISATION
     Dosage: DAILY DOSE: 100 INTERNATIONAL UNIT(S)
     Route: 065
     Dates: start: 20000601, end: 20000601
  6. RAPIFEN [Suspect]
     Indication: IN VITRO FERTILISATION
     Dosage: DAILY DOSE: 600 MILLIGRAM(S)
     Route: 042
     Dates: start: 20000601, end: 20000601

REACTIONS (3)
  - ABORTION INDUCED [None]
  - SEX CHROMOSOME ABNORMALITY [None]
  - UTERINE HAEMORRHAGE [None]
